FAERS Safety Report 9670941 (Version 2)
Quarter: 2014Q1

REPORT INFORMATION
  Report Type: Spontaneous
  Country: IT (occurrence: None)
  Receive Date: 20131104
  Receipt Date: 20140107
  Transmission Date: 20141002
  Serious: Yes (Other)
  Sender: FDA-Public Use
  Company Number: AUR-APL-2013-09048

PATIENT
  Age: 62 Year
  Sex: Female

DRUGS (3)
  1. SIMVASTATIN (SIMVASTATIN) [Suspect]
     Indication: HYPERCHOLESTEROLAEMIA
     Dosage: 20MG (20MG, 1 IN 1D) ORAL
     Route: 048
     Dates: start: 20130928, end: 20131006
  2. BISOPROLOL (BISOPROLOL) [Concomitant]
  3. PLAUNAZIIDE (BENICAR HCT) [Concomitant]

REACTIONS (5)
  - Formication [None]
  - Palpitations [None]
  - Presyncope [None]
  - Rhabdomyolysis [None]
  - Vision blurred [None]
